FAERS Safety Report 4509366-5 (Version None)
Quarter: 2004Q4

REPORT INFORMATION
  Report Type: 
  Country: None (occurrence: None)
  Receive Date: 20041025
  Receipt Date: 20040813
  Transmission Date: 20050328
  Serious: Yes (Other)
  Sender: FDA-Public Use
  Company Number: US-JNJFOC-20040804713

PATIENT
  Age: 28 Year
  Sex: Male
  Weight: 70.7611 kg

DRUGS (5)
  1. REMICADE [Suspect]
     Indication: CROHN'S DISEASE
     Dosage: 5 MG/KG, INTRAVENOUS
     Route: 042
     Dates: start: 20000101, end: 20020301
  2. STEROID ( ) CORTISTEROID NOS [Concomitant]
  3. AZATHIOPRINE [Concomitant]
  4. MERCAPTOPURINE [Concomitant]
  5. BUDESONIE ( ) BUDESONIDE [Concomitant]

REACTIONS (1)
  - LYMPHOMA [None]
